FAERS Safety Report 6192410-X (Version None)
Quarter: 2009Q2

REPORT INFORMATION
  Report Type: 
  Country: None (occurrence: None)
  Receive Date: 20090513
  Receipt Date: 20090513
  Transmission Date: 20091009
  Serious: No
  Sender: FDA-Public Use
  Company Number: None

PATIENT
  Age: 66 Year
  Sex: Male
  Weight: 88.4514 kg

DRUGS (1)
  1. DIOVAN [Suspect]
     Indication: HYPERSENSITIVITY
     Dosage: 80 MG 1 DAILY MOUTH
     Route: 048

REACTIONS (1)
  - RASH [None]
